FAERS Safety Report 7701958-5 (Version None)
Quarter: 2011Q3

REPORT INFORMATION
  Report Type: 
  Country: None (occurrence: None)
  Receive Date: 20110822
  Receipt Date: 20110810
  Transmission Date: 20111222
  Serious: Yes (Other)
  Sender: FDA-Public Use
  Company Number: PHHY2011US68076

PATIENT
  Sex: Female
  Weight: 78.6 kg

DRUGS (17)
  1. PROZAC [Concomitant]
     Dosage: UNK UKN, UNK
     Route: 065
  2. KLONOPIN [Concomitant]
     Dosage: UNK UKN, UNK
     Route: 065
  3. CALCIUM CARBONATE [Concomitant]
     Dosage: UNK UKN, UNK
     Route: 065
  4. ZOMETA [Suspect]
     Indication: HYPERCALCAEMIA
     Dosage: 4 MG
     Route: 042
     Dates: start: 20110708
  5. MULTI-VITAMINS [Concomitant]
     Dosage: UNK UKN, UNK
     Route: 065
  6. ANTACID [Concomitant]
     Dosage: UNK UKN, UNK
     Route: 065
  7. ZOFRAN [Concomitant]
     Dosage: UNK UKN, UNK
     Route: 065
  8. BACTRIM [Concomitant]
     Dosage: UNK UKN, UNK
     Route: 065
  9. IBUPROFEN [Concomitant]
     Dosage: UNK UKN, UNK
     Route: 065
  10. NORCO [Concomitant]
     Dosage: UNK UKN, UNK
     Route: 065
  11. ASPIRIN [Concomitant]
     Dosage: UNK UKN, UNK
     Route: 065
  12. DEXAMETHASONE [Concomitant]
     Dosage: UNK UKN, UNK
     Route: 065
  13. DIFLUCAN [Concomitant]
     Dosage: UNK UKN, UNK
     Route: 065
  14. ACETAMINOPHEN [Concomitant]
     Dosage: UNK UKN, UNK
     Route: 065
  15. AMOXIL ^AYERST LAB^ [Concomitant]
     Dosage: UNK UKN, UNK
     Route: 065
  16. LENALIDOMIDE [Concomitant]
     Dosage: UNK UKN, UNK
     Route: 065
  17. ACYCLOVIR [Concomitant]
     Dosage: UNK UL, UNK
     Route: 065

REACTIONS (30)
  - RETCHING [None]
  - MYALGIA [None]
  - ASTHENIA [None]
  - NAUSEA [None]
  - ARTHRALGIA [None]
  - HEADACHE [None]
  - MALAISE [None]
  - CONSTIPATION [None]
  - RASH [None]
  - DECREASED APPETITE [None]
  - LIMB DISCOMFORT [None]
  - RASH ERYTHEMATOUS [None]
  - LETHARGY [None]
  - BONE PAIN [None]
  - CHILLS [None]
  - PYREXIA [None]
  - PARAESTHESIA [None]
  - FEELING ABNORMAL [None]
  - TEMPOROMANDIBULAR JOINT SYNDROME [None]
  - POLLAKIURIA [None]
  - FATIGUE [None]
  - COUGH [None]
  - BURNING SENSATION [None]
  - THIRST [None]
  - ANXIETY [None]
  - ABDOMINAL DISCOMFORT [None]
  - ANAEMIA [None]
  - PAIN IN EXTREMITY [None]
  - BACK PAIN [None]
  - DRUG HYPERSENSITIVITY [None]
